FAERS Safety Report 10214180 (Version 1)
Quarter: 2014Q2

REPORT INFORMATION
  Report Type: Spontaneous
  Country: US (occurrence: US)
  Receive Date: 20140603
  Receipt Date: 20140603
  Transmission Date: 20141212
  Serious: No
  Sender: FDA-Public Use
  Company Number: US-PFIZER INC-2014148353

PATIENT
  Age: 34 Year
  Sex: Male

DRUGS (1)
  1. LYRICA [Suspect]
     Indication: MUSCULAR DYSTROPHY
     Dosage: 75 MG, 2X/DAY
     Route: 048
     Dates: start: 2014, end: 201405

REACTIONS (2)
  - Off label use [Recovered/Resolved]
  - Vision blurred [Recovered/Resolved]
